FAERS Safety Report 20696402 (Version 1)
Quarter: 2022Q2

REPORT INFORMATION
  Report Type: Spontaneous
  Country: US (occurrence: None)
  Receive Date: 20220409
  Receipt Date: 20220409
  Transmission Date: 20220721
  Serious: No
  Sender: FDA-Public Use
  Company Number: None

PATIENT
  Age: 73 Year
  Sex: Male

DRUGS (1)
  1. IVERMECTIN [Suspect]
     Active Substance: IVERMECTIN
     Indication: Rosacea
     Dosage: FREQUENCY : DAILY;?
     Route: 061
     Dates: start: 20220110, end: 20220115

REACTIONS (1)
  - Application site pain [None]

NARRATIVE: CASE EVENT DATE: 20220115
